FAERS Safety Report 16572020 (Version 7)
Quarter: 2020Q1

REPORT INFORMATION
  Report Type: Spontaneous
  Country: US (occurrence: US)
  Receive Date: 20190715
  Receipt Date: 20200317
  Transmission Date: 20200409
  Serious: No
  Sender: FDA-Public Use
  Company Number: US-PFIZER INC-2019252190

PATIENT
  Age: 55 Year
  Sex: Female
  Weight: 63 kg

DRUGS (2)
  1. XELJANZ [Suspect]
     Active Substance: TOFACITINIB CITRATE
     Indication: SYSTEMIC LUPUS ERYTHEMATOSUS
     Dosage: 5 MG, 2X/DAY
     Route: 048
     Dates: start: 201903
  2. XELJANZ [Suspect]
     Active Substance: TOFACITINIB CITRATE
     Indication: RHEUMATOID ARTHRITIS
     Dosage: 5 MG, 2X/DAY
     Route: 048
     Dates: start: 201907

REACTIONS (16)
  - Dysphagia [Unknown]
  - White blood cell count abnormal [Unknown]
  - Influenza [Recovered/Resolved]
  - Immune system disorder [Unknown]
  - Anaemia [Unknown]
  - Depression [Not Recovered/Not Resolved]
  - Tooth infection [Unknown]
  - Pharyngitis [Unknown]
  - Oral infection [Unknown]
  - Drug ineffective [Unknown]
  - Condition aggravated [Unknown]
  - Weight increased [Unknown]
  - Toothache [Not Recovered/Not Resolved]
  - Pharyngeal swelling [Unknown]
  - Odynophagia [Unknown]
  - Mouth swelling [Unknown]

NARRATIVE: CASE EVENT DATE: 2019
